FAERS Safety Report 9721196 (Version 1)
Quarter: 2013Q4

REPORT INFORMATION
  Report Type: Spontaneous
  Country: US (occurrence: US)
  Receive Date: 20131129
  Receipt Date: 20131129
  Transmission Date: 20140711
  Serious: No
  Sender: FDA-Public Use
  Company Number: US-PFIZER INC-2013339125

PATIENT
  Age: 40 Year
  Sex: Female
  Weight: 67.57 kg

DRUGS (5)
  1. RELPAX [Suspect]
     Indication: MIGRAINE
     Dosage: 40 MG, AS NEEDED
     Dates: start: 201311
  2. FIORICET [Suspect]
     Indication: MIGRAINE
     Dosage: UNK
  3. METHADONE [Concomitant]
     Indication: NECK PAIN
     Dosage: 5 MG, 4X/DAY
  4. TOPAMAX [Concomitant]
     Indication: MIGRAINE PROPHYLAXIS
     Dosage: UNK, 2X/DAY
  5. VALIUM [Concomitant]
     Indication: SLEEP DISORDER
     Dosage: 5 MG, 1X/DAY

REACTIONS (4)
  - Joint range of motion decreased [Unknown]
  - Hypersomnia [Unknown]
  - Migraine [Unknown]
  - Drug ineffective [Unknown]
